FAERS Safety Report 13948295 (Version 1)
Quarter: 2017Q3

REPORT INFORMATION
  Report Type: Spontaneous
  Country: US (occurrence: US)
  Receive Date: 20170908
  Receipt Date: 20170908
  Transmission Date: 20171128
  Serious: Yes (Other)
  Sender: FDA-Public Use
  Company Number: US-APOTEX-2017AP018139

PATIENT
  Age: 29 Year
  Sex: Male

DRUGS (11)
  1. FLUCONAZOLE TABLETS [Suspect]
     Active Substance: FLUCONAZOLE
     Indication: EYE INFECTION
  2. NATAMYCIN [Suspect]
     Active Substance: NATAMYCIN
     Indication: EYE INFECTION
  3. NATAMYCIN [Suspect]
     Active Substance: NATAMYCIN
     Indication: FUSARIUM INFECTION
     Dosage: 5 %, Q.H.
     Route: 061
  4. ATROPINE. [Suspect]
     Active Substance: ATROPINE
     Indication: KERATITIS
     Route: 061
  5. GATIFLOXACIN. [Suspect]
     Active Substance: GATIFLOXACIN
     Indication: KERATITIS
     Route: 061
  6. AMPHOTERICIN B. [Suspect]
     Active Substance: AMPHOTERICIN B
     Indication: EYE INFECTION
  7. FLUCONAZOLE TABLETS [Suspect]
     Active Substance: FLUCONAZOLE
     Indication: FUSARIUM INFECTION
     Dosage: 200 MG, UNK
     Route: 048
  8. AMPHOTERICIN B. [Suspect]
     Active Substance: AMPHOTERICIN B
     Indication: FUSARIUM INFECTION
     Dosage: 0.5 %, Q.H.
     Route: 061
  9. TRIFLURIDINE. [Suspect]
     Active Substance: TRIFLURIDINE
     Indication: KERATITIS
     Route: 061
  10. VORICONAZOLE. [Concomitant]
     Active Substance: VORICONAZOLE
     Indication: FUSARIUM INFECTION
     Dosage: UNK
     Route: 061
  11. VORICONAZOLE. [Concomitant]
     Active Substance: VORICONAZOLE
     Indication: EYE INFECTION
     Dosage: 200 MG, BID
     Route: 048

REACTIONS (1)
  - Drug ineffective [Unknown]
